FAERS Safety Report 16550621 (Version 2)
Quarter: 2021Q4

REPORT INFORMATION
  Report Type: Spontaneous
  Country: CA (occurrence: CA)
  Receive Date: 20190710
  Receipt Date: 20211111
  Transmission Date: 20220303
  Serious: Yes (Disabling)
  Sender: FDA-Public Use
  Company Number: CA-AUROBINDO-AUR-APL-2019-038324

PATIENT
  Age: 77 Year
  Sex: Male
  Weight: 58 kg

DRUGS (5)
  1. TERBINAFINE [Suspect]
     Active Substance: TERBINAFINE
     Indication: Fungal infection
     Dosage: 250 MILLIGRAM, ONCE A DAY
     Route: 048
  2. BETAMETHASONE DIPROPIONATE\CLOTRIMAZOLE [Concomitant]
     Active Substance: BETAMETHASONE DIPROPIONATE\CLOTRIMAZOLE
     Indication: Product used for unknown indication
     Dosage: UNK
     Route: 065
  3. INDACATEROL [Concomitant]
     Active Substance: INDACATEROL
     Indication: Product used for unknown indication
     Dosage: UNK
     Route: 065
  4. SPIRIVA [Concomitant]
     Active Substance: TIOTROPIUM BROMIDE MONOHYDRATE
     Indication: Product used for unknown indication
     Dosage: UNK
     Route: 065
  5. ZOPICLONE [Concomitant]
     Active Substance: ZOPICLONE
     Indication: Product used for unknown indication
     Dosage: UNK
     Route: 065

REACTIONS (8)
  - Thinking abnormal [Recovered/Resolved]
  - Agitation [Recovered/Resolved]
  - Impulsive behaviour [Recovered/Resolved]
  - Irritability [Recovered/Resolved]
  - Lymphocyte count abnormal [Recovered/Resolved]
  - Mean cell volume abnormal [Recovered/Resolved]
  - Red blood cell count abnormal [Recovered/Resolved]
  - Restlessness [Recovered/Resolved]
